FAERS Safety Report 4858467-0 (Version None)
Quarter: 2005Q4

REPORT INFORMATION
  Report Type: 
  Country: None (occurrence: None)
  Receive Date: 20051215
  Receipt Date: 20051215
  Transmission Date: 20060501
  Serious: No
  Sender: FDA-Public Use
  Company Number: None

PATIENT
  Sex: Female
  Weight: 99.7 kg

DRUGS (2)
  1. MELPHALAN [Suspect]
     Dosage: SEE IMAGE
     Route: 042
     Dates: start: 20051203
  2. NEUPOGEN [Suspect]
     Dosage: SEE IMAGE
     Route: 058

REACTIONS (1)
  - VENOUS THROMBOSIS [None]
